FAERS Safety Report 9697526 (Version 1)
Quarter: 2013Q4

REPORT INFORMATION
  Report Type: Spontaneous
  Country: US (occurrence: None)
  Receive Date: 20131119
  Receipt Date: 20131119
  Transmission Date: 20140711
  Serious: No
  Sender: FDA-Public Use
  Company Number: None

PATIENT
  Age: 71 None
  Sex: Male
  Weight: 68.49 kg

DRUGS (10)
  1. RECLAST [Suspect]
     Indication: BONE LOSS
     Dosage: 1 INFUSION ONE A YEAR INJECTION
     Dates: start: 20131016, end: 20131016
  2. CORGARD [Concomitant]
  3. SIMVASTATIN [Concomitant]
  4. GABAPENTIN [Concomitant]
  5. NORVASC [Concomitant]
  6. RANITIDINE [Concomitant]
  7. PLAVIX [Concomitant]
  8. DAILY VIT E [Concomitant]
  9. CALCIUM AND VITAMIN D [Concomitant]
  10. FISH OIL [Concomitant]

REACTIONS (5)
  - Gingival bleeding [None]
  - Diarrhoea [None]
  - Bone pain [None]
  - Fatigue [None]
  - Asthenia [None]
